FAERS Safety Report 9738522 (Version 2)
Quarter: 2013Q4

REPORT INFORMATION
  Report Type: Report from Study
  Country: HK (occurrence: HK)
  Receive Date: 20131209
  Receipt Date: 20131213
  Transmission Date: 20140711
  Serious: Yes (Death, Life-Threatening, Hospitalization, Other)
  Sender: FDA-Public Use
  Company Number: HK-ROCHE-1309673

PATIENT
  Age: 52 Year
  Sex: Female
  Weight: 43 kg

DRUGS (3)
  1. PERJETA [Suspect]
     Indication: BREAST CANCER METASTATIC
     Dosage: LOADING DOSE OF 840MG FOLLOWED BY 420MG EVERY 3 WEEKS
     Route: 042
     Dates: start: 20130930, end: 20131021
  2. HERCEPTIN [Concomitant]
     Indication: BREAST CANCER
     Route: 042
     Dates: start: 20130930, end: 20131021
  3. FASLODEX [Concomitant]
     Indication: BREAST CANCER
     Route: 030
     Dates: start: 20130905, end: 20131021

REACTIONS (3)
  - Respiratory failure [Fatal]
  - Disease progression [Not Recovered/Not Resolved]
  - Metastases to breast [Not Recovered/Not Resolved]
